FAERS Safety Report 20652483 (Version 1)
Quarter: 2022Q1

REPORT INFORMATION
  Report Type: Spontaneous
  Country: US (occurrence: US)
  Receive Date: 20220330
  Receipt Date: 20220330
  Transmission Date: 20220424
  Serious: Yes (Other)
  Sender: FDA-Public Use
  Company Number: US-009507513-2203USA009164

PATIENT
  Age: 80 Year

DRUGS (1)
  1. CUBICIN [Suspect]
     Active Substance: DAPTOMYCIN
     Dosage: 6 MILLIGRAM/KILOGRAM

REACTIONS (2)
  - Eosinophilic pneumonia [Recovered/Resolved]
  - Pulmonary eosinophilia [Recovered/Resolved]
